FAERS Safety Report 22347794 (Version 1)
Quarter: 2023Q2

REPORT INFORMATION
  Report Type: Spontaneous
  Country: US (occurrence: US)
  Receive Date: 20230522
  Receipt Date: 20230522
  Transmission Date: 20230721
  Serious: Yes (Other)
  Sender: FDA-Public Use
  Company Number: US-BEH-2023158764

PATIENT
  Age: 53 Year
  Sex: Male

DRUGS (1)
  1. HIZENTRA [Suspect]
     Active Substance: HUMAN IMMUNOGLOBULIN G
     Indication: Hypogammaglobulinaemia
     Dosage: 10 GRAM, QOW
     Route: 058
     Dates: start: 202303

REACTIONS (1)
  - Hypogammaglobulinaemia [Unknown]

NARRATIVE: CASE EVENT DATE: 20230401
